FAERS Safety Report 15456615 (Version 1)
Quarter: 2018Q3

REPORT INFORMATION
  Report Type: Spontaneous
  Country: US (occurrence: US)
  Receive Date: 20180928
  Receipt Date: 20180928
  Transmission Date: 20181010
  Serious: Yes (Hospitalization)
  Sender: FDA-Public Use
  Company Number: None

PATIENT
  Age: 25 Year
  Sex: Female

DRUGS (1)
  1. KEVZARA [Suspect]
     Active Substance: SARILUMAB
     Indication: ARTERITIS
     Dosage: ?          OTHER FREQUENCY:EVERY 2 WEEKS ;?
     Route: 058
     Dates: start: 20180924, end: 20180926

REACTIONS (1)
  - Carotid artery occlusion [None]

NARRATIVE: CASE EVENT DATE: 20180924
